FAERS Safety Report 6385781-2 (Version None)
Quarter: 2009Q4

REPORT INFORMATION
  Report Type: 
  Country: None (occurrence: None)
  Receive Date: 20091002
  Receipt Date: 20081002
  Transmission Date: 20100525
  Serious: No
  Sender: FDA-Public Use
  Company Number: US-ASTRAZENECA-2008UW21313

PATIENT
  Age: 72 Year
  Sex: Female

DRUGS (3)
  1. ARIMIDEX [Suspect]
     Dosage: 1MG
     Route: 048
     Dates: start: 20030101
  2. AVALID [Concomitant]
     Dates: start: 20040101
  3. PREVACID [Concomitant]

REACTIONS (7)
  - BLOOD PRESSURE INCREASED [None]
  - HYPERHIDROSIS [None]
  - INSOMNIA [None]
  - IRRITABILITY [None]
  - MALAISE [None]
  - PAIN [None]
  - WEIGHT INCREASED [None]
